FAERS Safety Report 13603123 (Version 2)
Quarter: 2017Q2

REPORT INFORMATION
  Report Type: Spontaneous
  Country: AT (occurrence: AT)
  Receive Date: 20170601
  Receipt Date: 20170602
  Transmission Date: 20170830
  Serious: Yes (Death, Life-Threatening, Hospitalization, Other)
  Sender: FDA-Public Use
  Company Number: AT-ABBVIE-17P-009-1990462-00

PATIENT
  Age: 76 Year
  Sex: Female
  Weight: 84 kg

DRUGS (16)
  1. ALLOSTAD [Concomitant]
     Indication: PRODUCT USED FOR UNKNOWN INDICATION
     Dosage: FREQUENCY: 0-1-0
  2. FURO-SPIROBENE [Concomitant]
     Active Substance: FUROSEMIDE\SPIRONOLACTONE
     Indication: PRODUCT USED FOR UNKNOWN INDICATION
     Dosage: FREQUENCY: 1-0-0
  3. URATENS RET [Concomitant]
     Indication: PRODUCT USED FOR UNKNOWN INDICATION
     Dosage: FREQUENCY: 2-0-1
  4. AMLODIPIN BLU [Concomitant]
     Indication: PRODUCT USED FOR UNKNOWN INDICATION
     Dosage: FREQUENCY: 1-0-1
  5. VALACICLOVIR BLU [Concomitant]
     Indication: PRODUCT USED FOR UNKNOWN INDICATION
     Dosage: FREQUENCY: 1-0-0
  6. OLEOVIT D3 DROPS [Concomitant]
     Indication: PRODUCT USED FOR UNKNOWN INDICATION
  7. LAXOGOL [Concomitant]
     Indication: PRODUCT USED FOR UNKNOWN INDICATION
     Dosage: FREQUENCY: 1-0-0
  8. PSYCHOPAX DROPS [Concomitant]
     Indication: PRODUCT USED FOR UNKNOWN INDICATION
     Dosage: AS REQUIRED, MAXIMUM TWICE A DAY
  9. VENETOCLAX [Suspect]
     Active Substance: VENETOCLAX
     Route: 048
     Dates: start: 20170517, end: 20170527
  10. ARANESP [Concomitant]
     Active Substance: DARBEPOETIN ALFA
     Indication: PRODUCT USED FOR UNKNOWN INDICATION
     Route: 058
  11. MAGNONORM GEN. [Concomitant]
     Indication: PRODUCT USED FOR UNKNOWN INDICATION
     Dosage: FREQUENCY: 1-0-0
  12. CITRALOPRAM BLU [Concomitant]
     Indication: PRODUCT USED FOR UNKNOWN INDICATION
     Dosage: FREQUENCY: 1-0-0
  13. VENETOCLAX [Suspect]
     Active Substance: VENETOCLAX
     Indication: PLASMA CELL MYELOMA
     Dosage: RAMP UP DOSING: STARTING WITH INITIAL DOSE OF 20MG
     Route: 048
     Dates: start: 20170427, end: 20170516
  14. NOVALGIN [Concomitant]
     Active Substance: METAMIZOLE SODIUM
     Indication: PRODUCT USED FOR UNKNOWN INDICATION
     Dosage: FREQUENCY: 1-1-1-1
  15. CO-LISINOSTAD [Concomitant]
     Indication: PRODUCT USED FOR UNKNOWN INDICATION
     Dosage: FORM STRENGTH: 20/25 MG?FREQUENCY: 1-0-0
  16. PANTOPRAZOL + PH [Concomitant]
     Indication: PRODUCT USED FOR UNKNOWN INDICATION
     Dosage: FREQUENCY: 1-0-0

REACTIONS (12)
  - Troponin increased [Not Recovered/Not Resolved]
  - Acute myocardial infarction [Not Recovered/Not Resolved]
  - Sinus tachycardia [Unknown]
  - Left ventricular dysfunction [Unknown]
  - Off label use [Unknown]
  - Liver function test abnormal [Not Recovered/Not Resolved]
  - Chronic kidney disease [Not Recovered/Not Resolved]
  - Abnormal precordial movement [Unknown]
  - Multiple organ dysfunction syndrome [Fatal]
  - Transaminases abnormal [Not Recovered/Not Resolved]
  - Bacterial sepsis [Not Recovered/Not Resolved]
  - Akinesia [Unknown]

NARRATIVE: CASE EVENT DATE: 20170527
